FAERS Safety Report 8465863 (Version 2)
Quarter: 2012Q4

REPORT INFORMATION
  Report Type: Report from Study
  Country: JP (occurrence: JP)
  Receive Date: 20120319
  Receipt Date: 20121228
  Transmission Date: 20130627
  Serious: Yes (Hospitalization, Other)
  Sender: FDA-Public Use
  Company Number: PHHY2011JP05266

PATIENT
  Age: 63 Year
  Sex: Male

DRUGS (8)
  1. AFINITOR [Suspect]
     Indication: METASTATIC RENAL CELL CARCINOMA
     Dosage: 10 mg, daily
     Route: 048
     Dates: start: 20100813, end: 20101104
  2. AFINITOR [Suspect]
     Indication: BREAST NEOPLASM
     Dosage: 5 mg, daily
     Route: 048
     Dates: start: 20101203, end: 20110120
  3. AFINITOR [Suspect]
     Dosage: 10 mg, daily
     Route: 048
     Dates: start: 20110121, end: 20110624
  4. AFINITOR [Suspect]
     Dosage: 10 mg, Daily
     Route: 048
     Dates: start: 20110722, end: 20110827
  5. DEPAKENE-R [Concomitant]
     Indication: METASTATIC RENAL CELL CARCINOMA
     Dosage: 600 mg, UNK
     Route: 048
     Dates: start: 201005
  6. INTERFERON ALFA [Concomitant]
     Indication: METASTATIC RENAL CELL CARCINOMA
     Dosage: UNK
     Dates: start: 20030605, end: 20061016
  7. TECELEUKIN [Concomitant]
     Indication: METASTATIC RENAL CELL CARCINOMA
     Dosage: 1050000 IU, UNK
     Dates: start: 20080105, end: 20080329
  8. SORAFENIB TOSILATE [Concomitant]
     Indication: METASTATIC RENAL CELL CARCINOMA
     Dosage: 800 mg
     Route: 048
     Dates: start: 20081114, end: 20100523

REACTIONS (12)
  - Herpes zoster [Recovered/Resolved]
  - Neoplasm progression [Not Recovered/Not Resolved]
  - Malignant neoplasm progression [Not Recovered/Not Resolved]
  - Metastases to central nervous system [Not Recovered/Not Resolved]
  - Metastases to lung [Unknown]
  - Pleural effusion [Not Recovered/Not Resolved]
  - Dyspnoea [Not Recovered/Not Resolved]
  - Cardiac failure [Not Recovered/Not Resolved]
  - Hypertension [Not Recovered/Not Resolved]
  - Blood glucose increased [Unknown]
  - Cholecystitis infective [Recovering/Resolving]
  - Urticaria [Unknown]
